FAERS Safety Report 23445235 (Version 1)
Quarter: 2024Q1

REPORT INFORMATION
  Report Type: Report from Study
  Country: US (occurrence: US)
  Receive Date: 20240126
  Receipt Date: 20240126
  Transmission Date: 20240409
  Serious: Yes (Hospitalization)
  Sender: FDA-Public Use
  Company Number: US-ABBVIE-5574674

PATIENT
  Age: 57 Year
  Sex: Female
  Weight: 136 kg

DRUGS (4)
  1. VENCLEXTA [Suspect]
     Active Substance: VENETOCLAX
     Indication: Mantle cell lymphoma
     Dosage: FORM STRENGTH 100 MILLIGRAM
     Route: 048
     Dates: start: 20231230
  2. VENCLEXTA [Suspect]
     Active Substance: VENETOCLAX
     Indication: Mantle cell lymphoma
     Dosage: FORM STRENGTH 100 MILLIGRAM?LAST ADMIN DATE WAS 2023
     Route: 048
     Dates: start: 202307
  3. BRUKINSA [Concomitant]
     Active Substance: ZANUBRUTINIB
     Indication: Product used for unknown indication
  4. JAYPIRCA [Concomitant]
     Active Substance: PIRTOBRUTINIB
     Indication: Mantle cell lymphoma

REACTIONS (2)
  - Nerve compression [Recovered/Resolved]
  - Lymphadenopathy [Recovered/Resolved]

NARRATIVE: CASE EVENT DATE: 20231229
